FAERS Safety Report 4400835-5 (Version None)
Quarter: 2004Q3

REPORT INFORMATION
  Report Type: 
  Country: None (occurrence: None)
  Receive Date: 20040907
  Receipt Date: 20030630
  Transmission Date: 20050211
  Serious: No
  Sender: FDA-Public Use
  Company Number: US-BRISTOL-MYERS SQUIBB COMPANY-12314548

PATIENT
  Age: 80 Year
  Sex: Female
  Weight: 60 kg

DRUGS (4)
  1. COUMADIN [Suspect]
  2. PLAVIX [Suspect]
     Indication: THROMBOSIS PROPHYLAXIS
     Route: 048
     Dates: start: 20030623
  3. ASPIRIN [Concomitant]
  4. COZAAR [Concomitant]

REACTIONS (1)
  - DIARRHOEA [None]
